APPROVED DRUG PRODUCT: RETEVMO
Active Ingredient: SELPERCATINIB
Strength: 40MG
Dosage Form/Route: TABLET;ORAL
Application: N218160 | Product #001
Applicant: ELI LILLY AND CO
Approved: Apr 10, 2024 | RLD: Yes | RS: No | Type: RX

PATENTS:
Patent 12138250 | Expires: Oct 10, 2038
Patent 12138250 | Expires: Oct 10, 2038
Patent 12138250 | Expires: Oct 10, 2038
Patent 12138250 | Expires: Oct 10, 2038
Patent 10172851 | Expires: Oct 10, 2037
Patent 10137124 | Expires: Oct 10, 2037
Patent 10137124 | Expires: Oct 10, 2037
Patent 10137124 | Expires: Oct 10, 2037
Patent 10137124 | Expires: Oct 10, 2037
Patent 10172851 | Expires: Oct 10, 2037
Patent 10172851 | Expires: Oct 10, 2037
Patent 10172851 | Expires: Oct 10, 2037
Patent 10112942 | Expires: Oct 10, 2037
Patent 12138250*PED | Expires: Apr 10, 2039
Patent 10172851*PED | Expires: Apr 10, 2038
Patent 10137124*PED | Expires: Apr 10, 2038
Patent 10112942*PED | Expires: Apr 10, 2038

EXCLUSIVITY:
Code: M-311 | Date: Sep 27, 2027
Code: M-312 | Date: Sep 27, 2027
Code: ODE* | Date: May 29, 2031
Code: ODE* | Date: May 29, 2031
Code: ODE* | Date: May 8, 2027
Code: ODE* | Date: May 29, 2031
Code: ODE* | Date: May 8, 2027
Code: ODE* | Date: Sep 21, 2029
Code: ODE* | Date: Sep 21, 2029
Code: ODE* | Date: May 8, 2027
Code: PED | Date: Mar 27, 2028
Code: PED | Date: Mar 27, 2028
Code: PED | Date: Nov 29, 2031
Code: PED | Date: Nov 29, 2031
Code: PED | Date: Nov 29, 2031
Code: PED | Date: Mar 21, 2030
Code: PED | Date: Mar 21, 2030
Code: PED | Date: Nov 8, 2027
Code: PED | Date: Nov 8, 2027
Code: PED | Date: Nov 8, 2027